FAERS Safety Report 25042922 (Version 7)
Quarter: 2025Q4

REPORT INFORMATION
  Report Type: Spontaneous
  Country: JP (occurrence: JP)
  Receive Date: 20250305
  Receipt Date: 20251126
  Transmission Date: 20260117
  Serious: Yes (Death, Hospitalization, Other)
  Sender: MERCK SHARP & DOHME LLC
  Company Number: JP-MSD-M2024-41004

PATIENT
  Age: 8 Decade
  Sex: Male

DRUGS (8)
  1. KEYTRUDA [Suspect]
     Active Substance: PEMBROLIZUMAB
     Indication: Renal cell carcinoma
     Dosage: DOSE DESCRIPTION : 200 MILLIGRAM, Q3W?DAILY DOSE : 9.4 MILLIGRAM?REGIMEN DOSE : 200  MILLIGRAM
     Route: 041
     Dates: start: 20250205, end: 20250409
  2. KEYTRUDA [Suspect]
     Active Substance: PEMBROLIZUMAB
     Indication: Renal cell carcinoma
     Dosage: DOSE DESCRIPTION : 200 MILLIGRAM, Q3W?DAILY DOSE : 9.4 MILLIGRAM?REGIMEN DOSE : 200  MILLIGRAM
     Route: 041
     Dates: start: 202407, end: 2024
  3. KEYTRUDA [Suspect]
     Active Substance: PEMBROLIZUMAB
     Indication: Renal cell carcinoma
     Dosage: DOSE DESCRIPTION : UNK
     Route: 041
     Dates: start: 20241113
  4. LENVATINIB MESYLATE [Suspect]
     Active Substance: LENVATINIB MESYLATE
     Indication: Renal cell carcinoma
     Dosage: TIME INTERVAL: CYCLICAL: DOSE DESCRIPTION : 10 MILLIGRAM, 3 DAYS ON/4 DAYS OFF?DAILY DOSE : 4.29 ...
     Route: 048
     Dates: start: 202407, end: 20241009
  5. LENVATINIB MESYLATE [Suspect]
     Active Substance: LENVATINIB MESYLATE
     Indication: Renal cell carcinoma
     Dosage: TIME INTERVAL: CYCLICAL: DOSE DESCRIPTION : 8 MILLIGRAM, 4 DAYS ON/3 DAYS OFF
     Route: 048
     Dates: start: 20241029, end: 20241106
  6. LENVATINIB MESYLATE [Suspect]
     Active Substance: LENVATINIB MESYLATE
     Indication: Renal cell carcinoma
     Dosage: TIME INTERVAL: CYCLICAL: DOSE DESCRIPTION : 4 MILLIGRAM, TIW?DAILY DOSE : 1.716 MILLIGRAM?REGIMEN...
     Route: 048
     Dates: start: 20241113, end: 20241204
  7. LENVATINIB MESYLATE [Suspect]
     Active Substance: LENVATINIB MESYLATE
     Indication: Renal cell carcinoma
     Dosage: TIME INTERVAL: CYCLICAL: DOSE DESCRIPTION : 4 MILLIGRAM, 3 DAYS ON/4 DAYS OFF ?DAILY DOSE : 1.716...
     Route: 048
     Dates: start: 20250205, end: 2025
  8. LENVATINIB MESYLATE [Suspect]
     Active Substance: LENVATINIB MESYLATE
     Indication: Renal cell carcinoma
     Dosage: TIME INTERVAL: CYCLICAL: FOR 4 DAYS ADMINISTRATION WITH 3 DAYS WITHDRAWAL
     Dates: start: 20250702

REACTIONS (13)
  - Septic shock [Fatal]
  - Immune-mediated enterocolitis [Not Recovered/Not Resolved]
  - Pneumonia bacterial [Unknown]
  - Product use issue [Unknown]
  - Lung abscess [Recovered/Resolved]
  - C-reactive protein increased [Recovered/Resolved]
  - Pyrexia [Recovered/Resolved]
  - White blood cell count decreased [Recovered/Resolved]
  - Neutrophil count decreased [Recovered/Resolved]
  - White blood cell count decreased [Recovered/Resolved]
  - Neutrophil count decreased [Recovered/Resolved]
  - Escherichia sepsis [Unknown]
  - Diarrhoea [Not Recovered/Not Resolved]

NARRATIVE: CASE EVENT DATE: 20240101
